FAERS Safety Report 6513055-5 (Version None)
Quarter: 2009Q4

REPORT INFORMATION
  Report Type: 
  Country: None (occurrence: None)
  Receive Date: 20091222
  Receipt Date: 20091222
  Transmission Date: 20100525
  Serious: Yes (Other)
  Sender: FDA-Public Use
  Company Number: None

PATIENT
  Age: 51 Year
  Sex: Male
  Weight: 180.5316 kg

DRUGS (1)
  1. CEFDINIR [Suspect]
     Indication: BRONCHITIS
     Dosage: 600 MG DAILY PO
     Route: 048
     Dates: start: 20091213, end: 20091219

REACTIONS (1)
  - HAEMATURIA [None]
